FAERS Safety Report 11672946 (Version 1)
Quarter: 2015Q4

REPORT INFORMATION
  Report Type: Spontaneous
  Country: US (occurrence: US)
  Receive Date: 20151027
  Receipt Date: 20151027
  Transmission Date: 20160304
  Serious: No
  Sender: FDA-Public Use
  Company Number: US-ELI_LILLY_AND_COMPANY-US201007002556

PATIENT
  Sex: Male

DRUGS (1)
  1. FORTEO [Suspect]
     Active Substance: TERIPARATIDE
     Indication: OSTEOPOROSIS
     Dosage: 20 UG, DAILY (1/D)
     Dates: start: 20100624

REACTIONS (10)
  - Pain [Unknown]
  - Dyspnoea [Unknown]
  - Dysphagia [Unknown]
  - Decreased activity [Unknown]
  - Arthralgia [Unknown]
  - Blood pressure decreased [Unknown]
  - Muscular weakness [Unknown]
  - Neck pain [Unknown]
  - Chronic obstructive pulmonary disease [Not Recovered/Not Resolved]
  - Oropharyngeal pain [Unknown]
